FAERS Safety Report 15366933 (Version 1)
Quarter: 2018Q4

REPORT INFORMATION
  Report Type: Spontaneous
  Country: BY (occurrence: BY)
  Receive Date: 20180910
  Receipt Date: 20180910
  Transmission Date: 20190204
  Serious: Yes (Hospitalization, Other)
  Sender: FDA-Public Use
  Company Number: BY-PFIZER INC-2018360881

PATIENT
  Age: 42 Year
  Sex: Male
  Weight: 66.98 kg

DRUGS (20)
  1. DELAMANID [Suspect]
     Active Substance: DELAMANID
     Dosage: UNK
     Dates: start: 20180802
  2. CAPREOMYCIN [Suspect]
     Active Substance: CAPREOMYCIN
     Dosage: UNK
     Dates: start: 20180802
  3. IMIPENEM AND CILASTATIN [Suspect]
     Active Substance: CILASTATIN SODIUM\IMIPENEM
     Dosage: UNK
     Dates: start: 20180802
  4. DELAMANID [Suspect]
     Active Substance: DELAMANID
     Indication: TUBERCULOSIS
     Dosage: 200 (UNITS NOT PROVIDED) ONCE DAILY
     Route: 048
     Dates: start: 20180529, end: 20180627
  5. CLOFAZIMINE [Suspect]
     Active Substance: CLOFAZIMINE
     Indication: TUBERCULOSIS
     Dosage: 200 (UNITS NOT PROVIDED) ONCE DAILY
     Route: 048
     Dates: start: 20180529, end: 20180627
  6. CAPREOMYCIN [Suspect]
     Active Substance: CAPREOMYCIN
     Indication: TUBERCULOSIS
     Dosage: DAILY DOSE OF 1000 (UNITS NOT PROVIDED)
     Route: 042
     Dates: start: 20180529, end: 20180627
  7. ASCORBIC ACID. [Concomitant]
     Active Substance: ASCORBIC ACID
     Dosage: UNK
     Dates: start: 20180618, end: 20180627
  8. KETOCONAZOLE. [Concomitant]
     Active Substance: KETOCONAZOLE
     Dosage: UNK
     Dates: start: 20180414, end: 20180627
  9. IMIPENEM AND CILASTATIN [Suspect]
     Active Substance: CILASTATIN SODIUM\IMIPENEM
     Indication: TUBERCULOSIS
     Dosage: DAILY DOSE OF 2000 (UNITS NOT PROVIDED)
     Route: 042
     Dates: start: 20180529, end: 20180627
  10. COTRIMOXAZOLE [Concomitant]
     Active Substance: SULFAMETHOXAZOLE\TRIMETHOPRIM
     Dosage: UNK
     Dates: start: 20180112, end: 20180627
  11. LINEZOLID. [Suspect]
     Active Substance: LINEZOLID
     Indication: TUBERCULOSIS
     Dosage: DAILY DOSE OF 600 (UNITS NOT PROVIDED)
     Route: 048
     Dates: start: 20180529, end: 20180627
  12. CLOFAZIMINE [Suspect]
     Active Substance: CLOFAZIMINE
     Dosage: UNK
     Dates: start: 20180802
  13. FLUCONAZOLE. [Concomitant]
     Active Substance: FLUCONAZOLE
     Dosage: UNK
     Dates: start: 20180112, end: 20180627
  14. AMOXICILLIN AND CLAVULANATE POTASSIUM [Suspect]
     Active Substance: AMOXICILLIN\CLAVULANATE POTASSIUM
     Indication: TUBERCULOSIS
     Dosage: DAILY DOSE OF 2500 (UNITS NOT PROVIDED)
     Route: 048
     Dates: start: 20180529, end: 20180627
  15. LINEZOLID. [Suspect]
     Active Substance: LINEZOLID
     Dosage: UNK
     Dates: start: 20180802
  16. AMOXICILLIN AND CLAVULANATE POTASSIUM [Suspect]
     Active Substance: AMOXICILLIN\CLAVULANATE POTASSIUM
     Dosage: UNK
     Dates: start: 20180802
  17. FOLIC ACID. [Concomitant]
     Active Substance: FOLIC ACID
     Dosage: UNK
     Dates: start: 20180618, end: 20180627
  18. FERRONAL [Concomitant]
     Dosage: UNK
     Dates: start: 20180618, end: 20180627
  19. 3 TC/AZT ELEA [Concomitant]
     Active Substance: LAMIVUDINE\ZIDOVUDINE
     Dosage: UNK
     Dates: start: 20180118
  20. TENOFOVIR [Concomitant]
     Active Substance: TENOFOVIR
     Dosage: UNK
     Dates: start: 20180118

REACTIONS (8)
  - Chronic hepatitis C [Unknown]
  - Aortic arteriosclerosis [Unknown]
  - HIV infection [Unknown]
  - Spondylitis [Unknown]
  - Myocardial infarction [Recovered/Resolved]
  - Bone tuberculosis [Unknown]
  - Coronary artery disease [Unknown]
  - Platelet count decreased [Unknown]

NARRATIVE: CASE EVENT DATE: 20180618
